FAERS Safety Report 6129718-X (Version None)
Quarter: 2009Q1

REPORT INFORMATION
  Report Type: 
  Country: None (occurrence: None)
  Receive Date: 20090324
  Receipt Date: 20090317
  Transmission Date: 20090719
  Serious: Yes (Death, Hospitalization, Congenital Anomaly)
  Sender: FDA-Public Use
  Company Number: A0680197A

PATIENT
  Sex: Female
  Weight: 0.6 kg

DRUGS (14)
  1. PAROXETINE HYDROCHLORIDE [Suspect]
     Dosage: 20MG PER DAY
     Dates: start: 20030901, end: 20060417
  2. DEPAKOTE [Concomitant]
     Dates: start: 20020806, end: 20070419
  3. VITAMIN TAB [Concomitant]
  4. TEGRETOL [Concomitant]
     Dates: start: 20050125, end: 20060313
  5. ZONISAMIDE [Concomitant]
     Dates: start: 20060125, end: 20070510
  6. NITROFURANTOIN MACROCRYSTAL [Concomitant]
     Dates: start: 20060516
  7. LEVOTHYROXINE [Concomitant]
     Dates: start: 20060224
  8. PROMETHAZINE [Concomitant]
     Dates: start: 20060523
  9. PYRIDOXINE [Concomitant]
     Dates: start: 20060612
  10. DIAZEPAM [Concomitant]
     Dates: start: 20060719, end: 20061012
  11. FLUOCINONIDE [Concomitant]
     Dates: start: 20060825
  12. IRON SUPPLEMENT [Concomitant]
     Dates: start: 20060701
  13. PYRIDOXINE HCL [Concomitant]
  14. UNISOM [Concomitant]

REACTIONS (8)
  - ATRIAL SEPTAL DEFECT [None]
  - DRUG EXPOSURE DURING PREGNANCY [None]
  - INTRAVENTRICULAR HAEMORRHAGE [None]
  - PATENT DUCTUS ARTERIOSUS [None]
  - PERSISTENT FOETAL CIRCULATION [None]
  - PREMATURE BABY [None]
  - RESPIRATORY DISTRESS [None]
  - VENTRICULAR SEPTAL DEFECT [None]
